FAERS Safety Report 10447421 (Version 1)
Quarter: 2014Q3

REPORT INFORMATION
  Report Type: Spontaneous
  Country: US (occurrence: None)
  Receive Date: 20140910
  Receipt Date: 20140910
  Transmission Date: 20150326
  Serious: Yes (Hospitalization)
  Sender: FDA-Public Use
  Company Number: None

PATIENT
  Age: 78 Year
  Sex: Male
  Weight: 71.8 kg

DRUGS (6)
  1. CYCLOPHOSPHAMIDE. [Suspect]
     Active Substance: CYCLOPHOSPHAMIDE
  2. DOXORUBICIN HYDROCHLORIDE. [Suspect]
     Active Substance: DOXORUBICIN HYDROCHLORIDE
  3. VINCRISTINE SULFATE. [Suspect]
     Active Substance: VINCRISTINE SULFATE
  4. RITUXIMAB (MOAB C2B8 ANTI CD20, CHIMERIC) [Suspect]
     Active Substance: RITUXIMAB
  5. ETOPOSIDE (VP-16) [Suspect]
     Active Substance: ETOPOSIDE
  6. PREDNISONE. [Suspect]
     Active Substance: PREDNISONE
     Dosage: 100 MG PO BID ON DAYS 1-5
     Route: 048

REACTIONS (3)
  - Leukopenia [None]
  - Neutropenia [None]
  - Hyponatraemia [None]

NARRATIVE: CASE EVENT DATE: 20140902
